FAERS Safety Report 13072530 (Version 1)
Quarter: 2016Q4

REPORT INFORMATION
  Report Type: Not Available
  Country: CH (occurrence: CH)
  Receive Date: 20161229
  Receipt Date: 20161229
  Transmission Date: 20170207
  Serious: Yes (Hospitalization)
  Sender: FDA-Public Use
  Company Number: CH-NAPPMUNDI-GBR-2016-0042535

PATIENT
  Age: 86 Year
  Sex: Female

DRUGS (19)
  1. MYDOCALM                           /00293002/ [Interacting]
     Active Substance: TOLPERISONE HYDROCHLORIDE
     Dosage: 87.5 MG, DAILY
     Route: 048
     Dates: start: 20161121, end: 20161121
  2. REMERON [Suspect]
     Active Substance: MIRTAZAPINE
     Indication: DEPRESSIVE SYMPTOM
     Dosage: 7.5 MG, DAILY
     Route: 048
     Dates: start: 20161130, end: 20161205
  3. DISTRANEURINE                      /00027501/ [Concomitant]
  4. SEVREDOL [Suspect]
     Active Substance: MORPHINE
     Indication: PRODUCT USED FOR UNKNOWN INDICATION
     Route: 065
  5. TEMESTA                            /00273201/ [Concomitant]
     Active Substance: LORAZEPAM
  6. MOTILIUM [Concomitant]
     Active Substance: DOMPERIDONE
     Dosage: FOR USE AS NEEDED, ON A REGULAR BASIS
  7. MYDOCALM                           /00293002/ [Interacting]
     Active Substance: TOLPERISONE HYDROCHLORIDE
     Dosage: 125 MG, DAILY
     Route: 048
     Dates: start: 20161122, end: 20161122
  8. DAFALGAN [Concomitant]
     Active Substance: ACETAMINOPHEN
  9. PURSANA [Concomitant]
     Active Substance: FIG FRUIT OIL\SORBITOL
  10. VENLAFAXINE [Interacting]
     Active Substance: VENLAFAXINE HYDROCHLORIDE
     Dosage: UNK
     Route: 065
     Dates: start: 201601
  11. ENALAPRIL [Concomitant]
     Active Substance: ENALAPRIL
  12. MYDOCALM                           /00293002/ [Interacting]
     Active Substance: TOLPERISONE HYDROCHLORIDE
     Indication: PRODUCT USED FOR UNKNOWN INDICATION
     Dosage: 150 MG, DAILY
     Route: 048
     Dates: start: 20161123, end: 20161123
  13. SINTROM [Concomitant]
     Active Substance: ACENOCOUMAROL
  14. PREDNISONE. [Concomitant]
     Active Substance: PREDNISONE
  15. HALDOL [Concomitant]
     Active Substance: HALOPERIDOL
     Dosage: UNK UNK, PRN
  16. VENLAFAXINE [Interacting]
     Active Substance: VENLAFAXINE HYDROCHLORIDE
     Indication: PRODUCT USED FOR UNKNOWN INDICATION
     Dosage: 37.5 MG, DAILY
     Route: 065
     Dates: start: 20161123
  17. VENLAFAXINE [Interacting]
     Active Substance: VENLAFAXINE HYDROCHLORIDE
     Dosage: 75 MG, DAILY
     Route: 065
     Dates: start: 2016, end: 20161122
  18. LAXOBERON [Concomitant]
     Active Substance: SODIUM PICOSULFATE
  19. VITAMIN D                          /00107901/ [Concomitant]
     Active Substance: ERGOCALCIFEROL

REACTIONS (7)
  - Psychotic disorder [Recovered/Resolved]
  - Hypertonia [Recovered/Resolved]
  - Drug interaction [Unknown]
  - Rash erythematous [Unknown]
  - Confusional state [Recovered/Resolved]
  - Serotonin syndrome [Recovered/Resolved]
  - Hypotonia [Recovered/Resolved]

NARRATIVE: CASE EVENT DATE: 20161124
